FAERS Safety Report 8918493 (Version 1)
Quarter: 2012Q4

REPORT INFORMATION
  Report Type: 
  Country: IN (occurrence: IN)
  Receive Date: 20121120
  Receipt Date: 20121120
  Transmission Date: 20130627
  Serious: Yes (Hospitalization, Other)
  Sender: FDA-Public Use
  Company Number: IN-JNJFOC-20121104991

PATIENT
  Age: 12 Year
  Sex: Female

DRUGS (3)
  1. RISPERIDONE [Suspect]
     Indication: ABNORMAL BEHAVIOUR
     Route: 065
  2. RISPERIDONE [Suspect]
     Indication: ABNORMAL BEHAVIOUR
     Route: 065
  3. TRIHEXYPHENIDYL [Concomitant]
     Indication: ABNORMAL BEHAVIOUR
     Route: 065

REACTIONS (2)
  - Dystonia [Recovered/Resolved]
  - Mutism [Recovered/Resolved]
